FAERS Safety Report 22256338 (Version 1)
Quarter: 2023Q2

REPORT INFORMATION
  Report Type: Other
  Country: CN (occurrence: CN)
  Receive Date: 20230426
  Receipt Date: 20230426
  Transmission Date: 20230722
  Serious: Yes (Hospitalization, Other)
  Sender: FDA-Public Use
  Company Number: CN-ASTELLAS-2023US012688

PATIENT
  Age: 50 Year
  Sex: Male
  Weight: 65 kg

DRUGS (4)
  1. PROGRAF [Suspect]
     Active Substance: TACROLIMUS
     Indication: Glomerulonephritis membranous
     Route: 065
     Dates: start: 202301, end: 2023
  2. PROGRAF [Suspect]
     Active Substance: TACROLIMUS
     Indication: Immunosuppression
     Route: 048
     Dates: start: 20230412, end: 20230413
  3. PREDNISONE ACETATE [Suspect]
     Active Substance: PREDNISONE ACETATE
     Indication: Immunosuppression
     Route: 048
     Dates: start: 20230325, end: 20230413
  4. PREDNISONE ACETATE [Suspect]
     Active Substance: PREDNISONE ACETATE
     Indication: Glomerulonephritis membranous
     Route: 065
     Dates: start: 202301, end: 2023

REACTIONS (9)
  - Steroid diabetes [Unknown]
  - Oedema peripheral [Unknown]
  - Eyelid oedema [Unknown]
  - Blood glucose increased [Unknown]
  - Haemoglobin increased [Unknown]
  - Nausea [Unknown]
  - Vomiting [Unknown]
  - Abdominal distension [Unknown]
  - Product use in unapproved indication [Unknown]

NARRATIVE: CASE EVENT DATE: 20230101
